FAERS Safety Report 8261330-9 (Version None)
Quarter: 2012Q2

REPORT INFORMATION
  Report Type: 
  Country: None (occurrence: None)
  Receive Date: 20120405
  Receipt Date: 20120326
  Transmission Date: 20120825
  Serious: Yes (Other)
  Sender: FDA-Public Use
  Company Number: DE-VERTEX PHARMACEUTICALS INC.-000000000000000182

PATIENT
  Sex: Male

DRUGS (7)
  1. PANTOPRAZOLE [Concomitant]
     Dosage: DOSAGE FORM: UNSPECIFIED
     Route: 065
  2. ESCITALOPRAM [Concomitant]
     Dosage: DOSAGE FORM: UNSPECIFIED
     Route: 065
  3. ANTIVIRALS [Concomitant]
  4. PEG-INTRON [Concomitant]
     Route: 065
  5. REBETOL [Concomitant]
     Route: 065
  6. TESTOSTERONE [Concomitant]
     Dosage: DOSAGE FORM: UNSPECIFIED
     Route: 065
  7. INCIVO (TELAPREVIR) [Suspect]
     Indication: HEPATITIS C
     Dosage: DOSAGE FORM: TABLET
     Route: 048
     Dates: start: 20111201

REACTIONS (3)
  - NAUSEA [None]
  - DEPRESSION [None]
  - HEADACHE [None]
